FAERS Safety Report 8774798 (Version 2)
Quarter: 2012Q4

REPORT INFORMATION
  Report Type: 
  Country: US (occurrence: US)
  Receive Date: 20120910
  Receipt Date: 20121221
  Transmission Date: 20130627
  Serious: Yes (Hospitalization)
  Sender: FDA-Public Use
  Company Number: US-BAYER-2012-093431

PATIENT
  Age: 37 Year
  Sex: Female
  Weight: 61.22 kg

DRUGS (4)
  1. YASMIN [Suspect]
     Indication: CONTRACEPTION
     Dosage: UNK
     Dates: start: 20061219, end: 20070909
  2. FLUCONAZOLE [Concomitant]
     Dosage: 150 mg, UNK
     Dates: start: 20050515, end: 20070801
  3. AVELOX [Concomitant]
     Dosage: 400 mg, UNK
     Dates: start: 20070601
  4. NITROFURANTOIN [Concomitant]
     Dosage: UNK
     Dates: start: 20070625

REACTIONS (3)
  - Myocardial infarction [Recovered/Resolved]
  - Injury [Recovered/Resolved]
  - Pain [Recovered/Resolved]
